FAERS Safety Report 17654072 (Version 1)
Quarter: 2020Q2

REPORT INFORMATION
  Report Type: Spontaneous
  Country: US (occurrence: US)
  Receive Date: 20200410
  Receipt Date: 20200410
  Transmission Date: 20200713
  Serious: No
  Sender: FDA-Public Use
  Company Number: US-GLAXOSMITHKLINE-US2020059172

PATIENT
  Age: 69 Year
  Sex: Female
  Weight: 61.68 kg

DRUGS (1)
  1. EQUATE NICOTINE [Suspect]
     Active Substance: NICOTINE
     Indication: PRODUCT USED FOR UNKNOWN INDICATION
     Dosage: 21 MG

REACTIONS (4)
  - Application site reaction [Unknown]
  - Application site erythema [Recovering/Resolving]
  - Application site pruritus [Unknown]
  - Application site irritation [Unknown]

NARRATIVE: CASE EVENT DATE: 20200402
